FAERS Safety Report 10017366 (Version 1)
Quarter: 2014Q1

REPORT INFORMATION
  Report Type: Report from Study
  Country: US (occurrence: US)
  Receive Date: 20140318
  Receipt Date: 20140318
  Transmission Date: 20141002
  Serious: Yes (Disabling)
  Sender: FDA-Public Use
  Company Number: US-ROCHE-1362891

PATIENT
  Age: 54 Year
  Sex: Female
  Weight: 74 kg

DRUGS (1)
  1. HERCEPTIN [Suspect]
     Indication: HER-2 POSITIVE BREAST CANCER
     Route: 042
     Dates: start: 20130911

REACTIONS (5)
  - Chest pain [Not Recovered/Not Resolved]
  - Dyspnoea [Unknown]
  - Asthenia [Unknown]
  - Disorientation [Unknown]
  - Palpitations [Unknown]
